FAERS Safety Report 10597436 (Version 3)
Quarter: 2014Q4

REPORT INFORMATION
  Report Type: Spontaneous
  Country: TR (occurrence: TR)
  Receive Date: 20141121
  Receipt Date: 20141205
  Transmission Date: 20150529
  Serious: Yes (Other)
  Sender: FDA-Public Use
  Company Number: TR-AMGEN-TURSP2014086088

PATIENT
  Age: 59 Year
  Sex: Female

DRUGS (12)
  1. BELOC                              /00376903/ [Concomitant]
     Active Substance: METOPROLOL TARTRATE
     Dosage: UNK
  2. MONODUR [Concomitant]
     Dosage: UNK
  3. THYROMAZOL [Concomitant]
     Dosage: UNK
  4. GALVUS [Concomitant]
     Active Substance: VILDAGLIPTIN
     Dosage: UNK
  5. FOLBIOL [Concomitant]
     Active Substance: FOLIC ACID
     Dosage: UNK
  6. DELIX                              /00885601/ [Concomitant]
     Dosage: UNK
  7. PLAQUENIL [Concomitant]
     Active Substance: HYDROXYCHLOROQUINE SULFATE
     Dosage: UNK
  8. ENBREL [Suspect]
     Active Substance: ETANERCEPT
     Indication: RHEUMATOID ARTHRITIS
     Dosage: 50 MG, WEEKLY
     Route: 058
     Dates: start: 20141021, end: 20141021
  9. DIDERAL [Concomitant]
     Dosage: UNK
  10. COUMADINE [Concomitant]
     Active Substance: WARFARIN SODIUM
     Dosage: UNK
  11. COLCHICUM [Concomitant]
     Active Substance: COLCHICINE
     Dosage: UNK
  12. PREDNOL                            /00049601/ [Concomitant]
     Active Substance: METHYLPREDNISOLONE
     Dosage: UNK

REACTIONS (3)
  - Upper respiratory tract infection [Not Recovered/Not Resolved]
  - Pneumonia [Recovering/Resolving]
  - Chronic obstructive pulmonary disease [Recovering/Resolving]

NARRATIVE: CASE EVENT DATE: 20141028
